FAERS Safety Report 9338896 (Version 2)
Quarter: 2013Q3

REPORT INFORMATION
  Report Type: Report from Study
  Country: FR (occurrence: FR)
  Receive Date: 20130610
  Receipt Date: 20130804
  Transmission Date: 20140515
  Serious: Yes (Other)
  Sender: FDA-Public Use
  Company Number: PHHY2013FR058435

PATIENT
  Sex: 0

DRUGS (1)
  1. ACZ885 [Suspect]

REACTIONS (4)
  - Sinusitis [Unknown]
  - Headache [Recovered/Resolved]
  - Gingival pain [Recovered/Resolved]
  - Sinus headache [Recovered/Resolved]
